FAERS Safety Report 4267285-6 (Version None)
Quarter: 2004Q1

REPORT INFORMATION
  Report Type: 
  Country: None (occurrence: None)
  Receive Date: 20040108
  Receipt Date: 20031229
  Transmission Date: 20041129
  Serious: Yes (Hospitalization)
  Sender: FDA-Public Use
  Company Number: WAES 0312NOR00023

PATIENT
  Age: 90 Year
  Sex: Female

DRUGS (7)
  1. ACETAMINOPHEN [Concomitant]
     Route: 048
  2. ASPIRIN AND MAGNESIUM OXIDE [Suspect]
     Indication: ANALGESIC THERAPY
     Route: 048
  3. CITALOPRAM HYDROBROMIDE [Suspect]
     Indication: DEPRESSION
     Route: 048
  4. RENITEC COMP. [Concomitant]
     Route: 048
  5. VIOXX [Suspect]
     Route: 048
  6. SOTALOL HYDROCHLORIDE [Concomitant]
     Indication: ATRIAL FIBRILLATION
     Route: 048
  7. SOTALOL HYDROCHLORIDE [Concomitant]
     Route: 048

REACTIONS (9)
  - ABDOMINAL PAIN UPPER [None]
  - DUODENAL ULCER [None]
  - FAECAL OCCULT BLOOD POSITIVE [None]
  - GASTRIC ULCER [None]
  - GENERAL PHYSICAL HEALTH DETERIORATION [None]
  - HAEMATEMESIS [None]
  - HAEMOGLOBIN DECREASED [None]
  - MELAENA [None]
  - OESOPHAGEAL ULCER [None]
